FAERS Safety Report 7425607-9 (Version None)
Quarter: 2011Q2

REPORT INFORMATION
  Report Type: 
  Country: None (occurrence: None)
  Receive Date: 20110420
  Receipt Date: 20110408
  Transmission Date: 20111010
  Serious: Yes (Death, Hospitalization)
  Sender: FDA-Public Use
  Company Number: JP-AMGEN-JPNSP2010012277

PATIENT
  Age: 37 Year
  Sex: Male

DRUGS (8)
  1. RHEUMATREX [Suspect]
     Dosage: 6 MG, QWK
     Route: 048
     Dates: start: 20060403, end: 20061027
  2. ENBREL [Suspect]
     Dosage: 25 MG, WEEKLY, SYRINGE
     Route: 058
     Dates: start: 20080206, end: 20100607
  3. PREDNISOLONE                       /00016202/ [Concomitant]
     Indication: RHEUMATOID ARTHRITIS
     Dosage: 5 MG, QD
     Dates: start: 20101214
  4. ENBREL [Suspect]
     Indication: RHEUMATOID ARTHRITIS
     Dosage: 25 MG, 2X/WEEK, SYRINGE
     Route: 058
     Dates: start: 20100608, end: 20101207
  5. VOLTAREN [Concomitant]
     Indication: ANALGESIC THERAPY
     Dosage: 37.5 MG, 2X/DAY
     Route: 048
     Dates: start: 20100608, end: 20101225
  6. ENBREL [Suspect]
     Dosage: 25 MG, 2X/WEEK, LYOPHILIZED
     Route: 058
     Dates: start: 20060530, end: 20080205
  7. TRICOR [Concomitant]
     Indication: HYPERLIPIDAEMIA
     Dosage: 100 MG, 1X/DAY
     Route: 048
     Dates: start: 20071017, end: 20101225
  8. RHEUMATREX [Suspect]
     Indication: RHEUMATOID ARTHRITIS
     Dosage: 6 MG, QWK
     Route: 048
     Dates: start: 20100330, end: 20101202

REACTIONS (3)
  - INTERSTITIAL LUNG DISEASE [None]
  - ARTHRITIS [None]
  - CARDIO-RESPIRATORY ARREST [None]
